FAERS Safety Report 23716663 (Version 1)
Quarter: 2024Q2

REPORT INFORMATION
  Report Type: Spontaneous
  Country: AU (occurrence: AU)
  Receive Date: 20240408
  Receipt Date: 20240408
  Transmission Date: 20240716
  Serious: Yes (Hospitalization, Other)
  Sender: FDA-Public Use
  Company Number: None

PATIENT
  Age: 73 Year
  Sex: Female

DRUGS (7)
  1. NEUPRO [Suspect]
     Active Substance: ROTIGOTINE
     Indication: Parkinson^s disease
     Dosage: 16 MILLIGRAM, ONCE DAILY (QD)
     Route: 062
  2. SINEMET [Suspect]
     Active Substance: CARBIDOPA\LEVODOPA
     Indication: Parkinson^s disease
     Dosage: ONCE DAILY (QD)
     Route: 048
  3. SINEMET [Suspect]
     Active Substance: CARBIDOPA\LEVODOPA
     Dosage: IMMEDIATE RELEASE (STRENGTH 25+100) FIVE TIMES A DAY
     Route: 048
  4. RASAGILINE MESYLATE [Suspect]
     Active Substance: RASAGILINE MESYLATE
     Indication: Parkinson^s disease
     Dosage: 16 MILLIGRAM, ONCE DAILY (QD)
  5. PRAMIPEXOLE DIHYDROCHLORIDE [Suspect]
     Active Substance: PRAMIPEXOLE DIHYDROCHLORIDE
     Indication: Parkinson^s disease
     Dosage: UNK UNK, ONCE DAILY (QD)
  6. SINEMET CR [Suspect]
     Active Substance: CARBIDOPA\LEVODOPA
     Indication: Parkinson^s disease
     Dosage: UNK, ONCE DAILY (QD)
     Route: 048
  7. SINEMET CR [Suspect]
     Active Substance: CARBIDOPA\LEVODOPA
     Dosage: UNK, 4X/DAY (QID) (STRENGTH 50+200)
     Route: 048

REACTIONS (5)
  - Gastritis [Unknown]
  - Gastrointestinal necrosis [Unknown]
  - Obstruction gastric [Unknown]
  - Hiatus hernia [Unknown]
  - Product use issue [Unknown]
